FAERS Safety Report 9911604 (Version 1)
Quarter: 2014Q1

REPORT INFORMATION
  Report Type: Spontaneous
  Country: GB (occurrence: GB)
  Receive Date: 20140219
  Receipt Date: 20140219
  Transmission Date: 20141002
  Serious: Yes (Hospitalization)
  Sender: FDA-Public Use
  Company Number: PHHY2014GB014848

PATIENT
  Age: 57 Year
  Sex: Male

DRUGS (5)
  1. METFORMIN [Suspect]
     Dosage: 500 MG, UNK
     Route: 048
  2. PIOGLITAZONE [Suspect]
     Route: 048
  3. BISOPROLOL [Concomitant]
     Dosage: 2.5 MG, UNK
     Route: 048
  4. CANDESARTAN [Concomitant]
     Dosage: 4 MG, UNK
     Route: 048
  5. SPIRONOLACTONE [Concomitant]
     Dosage: 25 MG, UNK
     Route: 048

REACTIONS (2)
  - Cardiac failure congestive [Not Recovered/Not Resolved]
  - Dyspnoea [Not Recovered/Not Resolved]
